FAERS Safety Report 5237678-9 (Version None)
Quarter: 2007Q1

REPORT INFORMATION
  Report Type: 
  Country: None (occurrence: None)
  Receive Date: 20070214
  Receipt Date: 20070131
  Transmission Date: 20070707
  Serious: Yes (Other)
  Sender: FDA-Public Use
  Company Number: US-ELI_LILLY_AND_COMPANY-US200701001652

PATIENT
  Age: 50 Year
  Sex: Female

DRUGS (7)
  1. CYMBALTA [Suspect]
     Indication: ANXIETY
     Dosage: 60 MG, DAILY (1/D)
     Dates: start: 20060101, end: 20070101
  2. CYMBALTA [Suspect]
     Dosage: 30 MG, UNK
     Dates: start: 20070101
  3. NADOLOL [Concomitant]
     Dosage: 10 MG, DAILY (1/D)
  4. ACYCLOVIR [Concomitant]
     Route: 061
  5. VALTREX [Concomitant]
     Dosage: 500 MG, 2/D
  6. CALCIUM AND ERGOCALCIFEROL [Concomitant]
     Dosage: 2 UNK, DAILY (1/D)
  7. IBUPROFEN [Concomitant]
     Dosage: 600 MG, EVERY 8 HRS

REACTIONS (3)
  - SYNCOPE [None]
  - VENTRICULAR EXTRASYSTOLES [None]
  - VENTRICULAR TACHYCARDIA [None]
